FAERS Safety Report 7978610-4 (Version None)
Quarter: 2011Q4

REPORT INFORMATION
  Report Type: 
  Country: None (occurrence: None)
  Receive Date: 20111202
  Receipt Date: 20111125
  Transmission Date: 20120403
  Serious: Yes (Other)
  Sender: FDA-Public Use
  Company Number: 2011SP053798

PATIENT
  Age: 70 Year
  Sex: Female

DRUGS (8)
  1. TRAMADOL HCL [Concomitant]
  2. MIRTAZAPINE [Suspect]
     Indication: DEPRESSION
     Dosage: 15 MG;QD;PO
     Route: 048
     Dates: start: 20111113, end: 20111114
  3. LAFUTIDINE [Concomitant]
  4. SOLCOSERYL [Concomitant]
  5. CEFAZOLIN [Suspect]
     Indication: PRODUCT USED FOR UNKNOWN INDICATION
     Dosage: 2 GM;QD;IV
     Route: 042
     Dates: start: 20111110, end: 20111113
  6. PILOCARPINE HYDROCHLORIDE [Concomitant]
  7. FLURBIPROFEN [Concomitant]
  8. URSODIOL [Concomitant]

REACTIONS (3)
  - DRUG ERUPTION [None]
  - NEUTROPENIA [None]
  - SEPSIS [None]
